FAERS Safety Report 9090749 (Version 1)
Quarter: 2013Q1

REPORT INFORMATION
  Report Type: Spontaneous
  Country: IN (occurrence: IN)
  Receive Date: 20130131
  Receipt Date: 20130131
  Transmission Date: 20140127
  Serious: Yes (Other)
  Sender: FDA-Public Use
  Company Number: IN-PFIZER INC-2013036859

PATIENT
  Age: 55 Year
  Sex: Male

DRUGS (8)
  1. BUPIVACAINE HCL [Suspect]
     Indication: ANAESTHESIA
     Dosage: 15 ML OF 0.5 % SOLUTION
  2. LIDOCAINE HCL [Suspect]
     Indication: ANAESTHESIA
     Dosage: 15 ML OF 2% SOLUTION ADRENALIZED LIGNOCAINE
  3. ADRENALINE [Concomitant]
     Indication: ANAESTHESIA
     Dosage: 15 ML OF 2% SOLUTION ADRENALIZED LIGNOCAINE
  4. AMLODIPINE BESILATE [Concomitant]
     Indication: HYPERTENSION
     Dosage: 2.5 MG, 1X/DAY
  5. ATORVASTATIN [Concomitant]
     Dosage: 20 MG, 1X/DAY
  6. RANITIDINE [Concomitant]
     Indication: PREMEDICATION
     Dosage: 150 MG, UNK
  7. METOCLOPRAMIDE [Concomitant]
     Indication: PREMEDICATION
     Dosage: 10 MG, UNK
  8. DIAZEPAM [Concomitant]
     Indication: PREMEDICATION
     Dosage: 10 MG, UNK

REACTIONS (1)
  - Hypertension [Recovered/Resolved]
